FAERS Safety Report 20583136 (Version 1)
Quarter: 2022Q1

REPORT INFORMATION
  Report Type: Spontaneous
  Country: TN (occurrence: TN)
  Receive Date: 20220311
  Receipt Date: 20220311
  Transmission Date: 20220423
  Serious: Yes (Other)
  Sender: FDA-Public Use
  Company Number: TN-JUBILANT CADISTA PHARMACEUTICALS-2022JUB00050

PATIENT
  Age: 18 Year
  Sex: Female

DRUGS (3)
  1. MYCOPHENOLATE MOFETIL [Suspect]
     Active Substance: MYCOPHENOLATE MOFETIL
     Dosage: USED ^CHRONICALLY^
     Route: 065
  2. PROGRAF [Concomitant]
     Active Substance: TACROLIMUS
     Route: 065
  3. PREDNISONE [Concomitant]
     Active Substance: PREDNISONE
     Route: 065

REACTIONS (1)
  - Intracranial pressure increased [Recovered/Resolved]
